FAERS Safety Report 6506559-2 (Version None)
Quarter: 2009Q4

REPORT INFORMATION
  Report Type: 
  Country: None (occurrence: None)
  Receive Date: 20091221
  Receipt Date: 20091209
  Transmission Date: 20100525
  Serious: No
  Sender: FDA-Public Use
  Company Number: SE-JNJFOC-20091202533

PATIENT
  Age: 38 Year
  Sex: Female

DRUGS (5)
  1. DURAGESIC-100 [Suspect]
     Indication: FIBROMYALGIA
     Route: 062
  2. ALVEDON [Concomitant]
  3. UNKNOWN MEDICATION [Concomitant]
  4. OMEPRAZOLE [Concomitant]
  5. RELIFEX [Concomitant]

REACTIONS (1)
  - INAPPROPRIATE SCHEDULE OF DRUG ADMINISTRATION [None]
